FAERS Safety Report 9353105 (Version 5)
Quarter: 2014Q3

REPORT INFORMATION
  Report Type: Spontaneous
  Country: JP (occurrence: JP)
  Receive Date: 20130618
  Receipt Date: 20140703
  Transmission Date: 20150326
  Serious: Yes (Death, Other)
  Sender: FDA-Public Use
  Company Number: JP-ROCHE-1235956

PATIENT
  Age: 64 Year
  Sex: Female
  Weight: 56 kg

DRUGS (9)
  1. MANNITOL. [Concomitant]
     Active Substance: MANNITOL
     Indication: PROPHYLAXIS
     Route: 065
     Dates: start: 20130514, end: 20130514
  2. EMEND [Concomitant]
     Active Substance: APREPITANT
     Indication: PROPHYLAXIS
     Route: 065
     Dates: start: 20130514, end: 20130514
  3. ALOXI [Concomitant]
     Active Substance: PALONOSETRON HYDROCHLORIDE
     Indication: PROPHYLAXIS
     Route: 065
     Dates: start: 20130514, end: 20130514
  4. XELODA [Suspect]
     Active Substance: CAPECITABINE
     Indication: METASTATIC GASTRIC CANCER
     Dosage: IT IS ADMINISTER/ONE WEEKLY HOLIDAY MEDICINE FOR TWO WEEKS.
     Route: 048
     Dates: start: 20130422, end: 20130527
  5. HERCEPTIN [Suspect]
     Active Substance: TRASTUZUMAB
     Indication: METASTATIC GASTRIC CANCER
     Route: 041
     Dates: start: 20130422, end: 20130422
  6. PLATOSIN [Concomitant]
     Active Substance: CISPLATIN
     Indication: METASTATIC GASTRIC CANCER
     Route: 041
     Dates: start: 20130514, end: 20130514
  7. EMEND [Concomitant]
     Active Substance: APREPITANT
     Indication: PROPHYLAXIS
     Route: 065
     Dates: start: 20130515, end: 20130515
  8. DEXART [Concomitant]
     Active Substance: DEXAMETHASONE SODIUM PHOSPHATE
     Indication: PROPHYLAXIS
     Route: 065
     Dates: start: 20130514, end: 20130514
  9. HERCEPTIN [Suspect]
     Active Substance: TRASTUZUMAB
     Indication: METASTATIC GASTRIC CANCER
     Route: 041
     Dates: start: 2013, end: 20130514

REACTIONS (7)
  - Disseminated intravascular coagulation [Fatal]
  - Renal impairment [Unknown]
  - Pancytopenia [Fatal]
  - Vomiting [Fatal]
  - Pyrexia [Fatal]
  - Diarrhoea [Fatal]
  - Multi-organ failure [Fatal]

NARRATIVE: CASE EVENT DATE: 2013
